FAERS Safety Report 9315225 (Version 1)
Quarter: 2013Q2

REPORT INFORMATION
  Report Type: Spontaneous
  Country: AT (occurrence: AT)
  Receive Date: 20130529
  Receipt Date: 20130529
  Transmission Date: 20140414
  Serious: Yes (Hospitalization, Other)
  Sender: FDA-Public Use
  Company Number: AT-TEVA-407625ISR

PATIENT
  Age: 40 Year
  Sex: Female

DRUGS (3)
  1. RATIODOLOR 300/20 [Suspect]
     Indication: NASOPHARYNGITIS
     Dates: start: 201304, end: 201304
  2. RATIODOLOR 300/20 [Suspect]
     Indication: HEADACHE
  3. TONSIOTREN [Concomitant]

REACTIONS (5)
  - Anaphylactic shock [Recovered/Resolved]
  - Pharyngeal oedema [Recovered/Resolved]
  - Pruritus [Recovered/Resolved]
  - Rash generalised [Recovered/Resolved]
  - Generalised erythema [Recovered/Resolved]
